FAERS Safety Report 6809810-4 (Version None)
Quarter: 2010Q2

REPORT INFORMATION
  Report Type: 
  Country: None (occurrence: None)
  Receive Date: 20100630
  Receipt Date: 20100602
  Transmission Date: 20101027
  Serious: No
  Sender: FDA-Public Use
  Company Number: US-BAYER-201025829NA

PATIENT
  Age: 26 Year
  Sex: Female

DRUGS (1)
  1. MAGNEVIST [Suspect]
     Indication: NUCLEAR MAGNETIC RESONANCE IMAGING BRAIN
     Dosage: TOTAL DAILY DOSE: 12 ML  UNIT DOSE: 50 ML
     Dates: start: 20100602, end: 20100602

REACTIONS (2)
  - SNEEZING [None]
  - URTICARIA [None]
